FAERS Safety Report 7580905-3 (Version None)
Quarter: 2011Q2

REPORT INFORMATION
  Report Type: 
  Country: None (occurrence: None)
  Receive Date: 20110629
  Receipt Date: 20110623
  Transmission Date: 20111010
  Serious: Yes (Hospitalization, Other)
  Sender: FDA-Public Use
  Company Number: GB-MERCK-1106GBR00112

PATIENT
  Age: 83 Year
  Sex: Male

DRUGS (10)
  1. FOLIC ACID [Concomitant]
     Route: 065
  2. FUROSEMIDE [Concomitant]
     Route: 065
  3. LATANOPROST [Concomitant]
     Route: 065
  4. ASPIRIN [Concomitant]
     Route: 065
  5. SENNA [Concomitant]
     Route: 065
  6. GOSERELIN ACETATE [Concomitant]
     Route: 065
  7. FINASTERIDE [Concomitant]
     Route: 048
  8. ZOCOR [Suspect]
     Indication: BLOOD CHOLESTEROL INCREASED
     Route: 048
     Dates: end: 20110611
  9. METFORMIN [Concomitant]
     Route: 065
  10. CYPROTERONE ACETATE [Suspect]
     Indication: PROSTATE CANCER
     Route: 048
     Dates: start: 20110601, end: 20110611

REACTIONS (4)
  - MUSCULAR WEAKNESS [None]
  - MYOPATHY [None]
  - HEPATIC FUNCTION ABNORMAL [None]
  - MUSCLE INJURY [None]
